FAERS Safety Report 20101519 (Version 5)
Quarter: 2022Q1

REPORT INFORMATION
  Report Type: Spontaneous
  Country: US (occurrence: US)
  Receive Date: 20211123
  Receipt Date: 20220107
  Transmission Date: 20220423
  Serious: No
  Sender: FDA-Public Use
  Company Number: US-JNJFOC-20211130212

PATIENT
  Age: 65 Year
  Sex: Female
  Weight: 59.020 kg

DRUGS (1)
  1. TREMFYA [Suspect]
     Active Substance: GUSELKUMAB
     Indication: Psoriatic arthropathy
     Route: 058
     Dates: start: 202103

REACTIONS (2)
  - Device malfunction [Unknown]
  - Product dose omission issue [Unknown]
